FAERS Safety Report 18494575 (Version 1)
Quarter: 2020Q4

REPORT INFORMATION
  Report Type: Spontaneous
  Country: IN (occurrence: IN)
  Receive Date: 20201112
  Receipt Date: 20201112
  Transmission Date: 20210114
  Serious: Yes (Other)
  Sender: FDA-Public Use
  Company Number: IN-CIPLA LTD.-2020IN08586

PATIENT

DRUGS (1)
  1. BLEOMYCIN SULPHATE [Suspect]
     Active Substance: BLEOMYCIN SULFATE
     Indication: SCLEROTHERAPY
     Dosage: UNK, EVERY 3 YEARS
     Route: 065

REACTIONS (2)
  - Therapy non-responder [Unknown]
  - Lipofibroma [Unknown]
